FAERS Safety Report 5390834-1 (Version None)
Quarter: 2007Q3

REPORT INFORMATION
  Report Type: 
  Country: None (occurrence: None)
  Receive Date: 20070712
  Receipt Date: 20031027
  Transmission Date: 20080115
  Serious: Yes (Hospitalization)
  Sender: FDA-Public Use
  Company Number: 2006666

PATIENT
  Age: 80 Year
  Sex: Male

DRUGS (6)
  1. CEFIXIME CHEWABLE [Suspect]
     Indication: PROSTATITIS
     Dosage: 1 DOSAGE FORMS ORAL
     Route: 048
     Dates: end: 20010710
  2. CIPROFLOXACI0N           (CIPROFLOXACIN) [Suspect]
     Indication: PROSTATITIS
     Dosage: 500 MG ORAL
     Route: 048
     Dates: end: 20010708
  3. FENOFIBRATE [Suspect]
     Indication: HYPERCHOLESTEROLAEMIA
     Dosage: 300 MG ORAL
     Route: 048
     Dates: start: 19850101, end: 20010710
  4. IBUPROFEN [Suspect]
     Indication: PROSTATITIS
     Dosage: ORAL
     Route: 048
     Dates: start: 20010706, end: 20040710
  5. CORVASAL   (MOLSIDOMINE) [Concomitant]
  6. KARDGIC               (SPOT-ON-SOLUTION) (ACETYLSALICYLATE LYSINE) [Concomitant]

REACTIONS (2)
  - RENAL FAILURE ACUTE [None]
  - RHABDOMYOLYSIS [None]
